FAERS Safety Report 23188729 (Version 1)
Quarter: 2023Q4

REPORT INFORMATION
  Report Type: Spontaneous
  Country: US (occurrence: US)
  Receive Date: 20231115
  Receipt Date: 20231115
  Transmission Date: 20240110
  Serious: No
  Sender: FDA-Public Use
  Company Number: US-PFIZER INC-202300360739

PATIENT
  Age: 57 Year
  Sex: Female

DRUGS (1)
  1. IBRANCE [Suspect]
     Active Substance: PALBOCICLIB
     Dosage: 125 MG, CYCLIC, 1 TABLET DAILY FOR 3 WEEKS ON AND 1 WEEK OFF
     Dates: start: 20231020

REACTIONS (2)
  - Rhinorrhoea [Recovered/Resolved]
  - Chills [Unknown]
